FAERS Safety Report 16028108 (Version 15)
Quarter: 2022Q3

REPORT INFORMATION
  Report Type: Spontaneous
  Country: GB (occurrence: GB)
  Receive Date: 20190304
  Receipt Date: 20220712
  Transmission Date: 20221026
  Serious: Yes (Death, Hospitalization, Other)
  Sender: FDA-Public Use
  Company Number: GB-EMA-DD-20181127-N9C8J7-154750

PATIENT
  Age: 61 Year
  Sex: Female

DRUGS (101)
  1. CAPECITABINE [Suspect]
     Active Substance: CAPECITABINE
     Indication: HER2 positive breast cancer
     Dosage: 3000MG ONCE DAILY?1500 MG, QD
     Route: 048
     Dates: start: 20170210, end: 20170728
  2. CAPECITABINE [Suspect]
     Active Substance: CAPECITABINE
     Indication: Breast cancer metastatic
     Route: 048
     Dates: start: 20170210, end: 20170728
  3. CAPECITABINE [Suspect]
     Active Substance: CAPECITABINE
     Route: 048
     Dates: start: 20170210
  4. CAPECITABINE [Suspect]
     Active Substance: CAPECITABINE
     Dosage: 3000MG ONCE DAILY
     Route: 048
  5. CAPECITABINE [Suspect]
     Active Substance: CAPECITABINE
     Dosage: 1500 MILLIGRAM 0.5 DAY
     Route: 048
     Dates: start: 20170210, end: 20170728
  6. CAPECITABINE [Suspect]
     Active Substance: CAPECITABINE
     Route: 048
  7. CAPECITABINE [Suspect]
     Active Substance: CAPECITABINE
     Dosage: 6000 MILLIGRAM DAILY 3000 MILLIGRAM, BID
     Route: 048
     Dates: start: 20170210, end: 20170728
  8. CAPECITABINE [Suspect]
     Active Substance: CAPECITABINE
     Dosage: 3000MG ONCE DAILY
     Dates: start: 20170210, end: 20170728
  9. DOCETAXEL [Suspect]
     Active Substance: DOCETAXEL
     Indication: HER2 positive breast cancer
     Dosage: 108 MILLIGRAM, Q3W, DOSE MODIFIED
     Route: 042
     Dates: start: 20150602, end: 20150602
  10. DOCETAXEL [Suspect]
     Active Substance: DOCETAXEL
     Indication: Breast cancer metastatic
     Dosage: 86 MILLIGRAM, Q3WK, DOSE DISCONTINUED
     Route: 042
     Dates: start: 20150629, end: 20150720
  11. DOCETAXEL [Suspect]
     Active Substance: DOCETAXEL
     Route: 042
  12. DOCETAXEL [Suspect]
     Active Substance: DOCETAXEL
     Dosage: DOSE MODIFIED
     Route: 042
     Dates: start: 20150602, end: 20150602
  13. DOCETAXEL [Suspect]
     Active Substance: DOCETAXEL
     Route: 042
     Dates: start: 20150629, end: 20150720
  14. DOCETAXEL [Suspect]
     Active Substance: DOCETAXEL
     Dosage: DOSE MODIFIED
     Route: 042
     Dates: start: 20150602, end: 20150602
  15. DOCETAXEL [Suspect]
     Active Substance: DOCETAXEL
     Route: 042
     Dates: start: 20150629, end: 20150720
  16. DOCETAXEL [Suspect]
     Active Substance: DOCETAXEL
     Route: 042
     Dates: start: 20150602, end: 20150602
  17. DOCETAXEL [Suspect]
     Active Substance: DOCETAXEL
     Dates: start: 20150629, end: 20150720
  18. DOCETAXEL [Suspect]
     Active Substance: DOCETAXEL
     Dosage: Q3W,DOSE MODIFIED
     Dates: start: 20150602, end: 20150602
  19. ADO-TRASTUZUMAB EMTANSINE [Suspect]
     Active Substance: ADO-TRASTUZUMAB EMTANSINE
     Indication: HER2 positive breast cancer
     Dosage: ALSO RECEIVED 172 MG FROM 01-DEC-2015 TO 21-DEC-2015
     Route: 042
     Dates: start: 20160215, end: 20160215
  20. ADO-TRASTUZUMAB EMTANSINE [Suspect]
     Active Substance: ADO-TRASTUZUMAB EMTANSINE
     Route: 041
     Dates: start: 20151201, end: 20151221
  21. ADO-TRASTUZUMAB EMTANSINE [Suspect]
     Active Substance: ADO-TRASTUZUMAB EMTANSINE
     Route: 042
     Dates: start: 20151201
  22. ADO-TRASTUZUMAB EMTANSINE [Suspect]
     Active Substance: ADO-TRASTUZUMAB EMTANSINE
     Route: 042
     Dates: start: 20151201, end: 20160215
  23. ADO-TRASTUZUMAB EMTANSINE [Suspect]
     Active Substance: ADO-TRASTUZUMAB EMTANSINE
     Route: 042
  24. ADO-TRASTUZUMAB EMTANSINE [Suspect]
     Active Substance: ADO-TRASTUZUMAB EMTANSINE
     Route: 042
  25. ADO-TRASTUZUMAB EMTANSINE [Suspect]
     Active Substance: ADO-TRASTUZUMAB EMTANSINE
     Dosage: 1 DOSAGE FORM, Q3W,DOSE REDUCED
     Route: 042
  26. ADO-TRASTUZUMAB EMTANSINE [Suspect]
     Active Substance: ADO-TRASTUZUMAB EMTANSINE
     Dosage: ALSO RECEIVED 350 MG ON 01-JUN-2015
     Route: 042
     Dates: start: 20150629, end: 20151102
  27. ADO-TRASTUZUMAB EMTANSINE [Suspect]
     Active Substance: ADO-TRASTUZUMAB EMTANSINE
     Dosage: DOSE REDUCED
     Route: 042
  28. ADO-TRASTUZUMAB EMTANSINE [Suspect]
     Active Substance: ADO-TRASTUZUMAB EMTANSINE
     Dosage: 172 MG, Q3W
     Route: 042
     Dates: start: 20151201, end: 20151221
  29. ADO-TRASTUZUMAB EMTANSINE [Suspect]
     Active Substance: ADO-TRASTUZUMAB EMTANSINE
     Dosage: 140 MG, Q3W
     Dates: start: 20151201, end: 20160215
  30. VINORELBINE [Suspect]
     Active Substance: VINORELBINE TARTRATE
     Indication: HER2 positive breast cancer
     Route: 048
     Dates: start: 20180608, end: 20180810
  31. VINORELBINE [Suspect]
     Active Substance: VINORELBINE TARTRATE
     Indication: Breast cancer metastatic
     Route: 048
     Dates: start: 20180503, end: 20180608
  32. VINORELBINE [Suspect]
     Active Substance: VINORELBINE TARTRATE
     Route: 048
  33. VINORELBINE [Suspect]
     Active Substance: VINORELBINE TARTRATE
     Route: 048
     Dates: start: 20180503, end: 20180503
  34. VINORELBINE [Suspect]
     Active Substance: VINORELBINE TARTRATE
     Route: 048
     Dates: start: 20180530, end: 20180608
  35. VINORELBINE [Suspect]
     Active Substance: VINORELBINE TARTRATE
     Dates: start: 20180608, end: 20180810
  36. VINORELBINE [Suspect]
     Active Substance: VINORELBINE TARTRATE
  37. ERIBULIN [Suspect]
     Active Substance: ERIBULIN
     Indication: HER2 positive breast cancer
     Route: 042
     Dates: start: 20160411, end: 20160624
  38. ERIBULIN [Suspect]
     Active Substance: ERIBULIN
     Route: 042
  39. ERIBULIN [Suspect]
     Active Substance: ERIBULIN
     Route: 065
  40. ERIBULIN [Suspect]
     Active Substance: ERIBULIN
     Route: 042
     Dates: start: 20160411
  41. ERIBULIN [Suspect]
     Active Substance: ERIBULIN
     Route: 042
     Dates: start: 20160624, end: 20160624
  42. ERIBULIN [Suspect]
     Active Substance: ERIBULIN
     Route: 042
     Dates: start: 20160411, end: 20160411
  43. ERIBULIN [Suspect]
     Active Substance: ERIBULIN
     Route: 042
  44. PERTUZUMAB [Suspect]
     Active Substance: PERTUZUMAB
     Indication: HER2 positive breast cancer
     Dosage: TARGETED THERAPY; ALSO RECEIVED 840 MG
     Route: 042
     Dates: start: 20150622, end: 20151102
  45. PERTUZUMAB [Suspect]
     Active Substance: PERTUZUMAB
     Indication: Breast cancer metastatic
     Dosage: 840 MG LOADING DOSE
     Route: 042
  46. PERTUZUMAB [Suspect]
     Active Substance: PERTUZUMAB
     Route: 042
  47. PERTUZUMAB [Suspect]
     Active Substance: PERTUZUMAB
     Dosage: 1 DF
     Route: 042
  48. PERTUZUMAB [Suspect]
     Active Substance: PERTUZUMAB
     Route: 042
  49. PERTUZUMAB [Suspect]
     Active Substance: PERTUZUMAB
     Route: 042
  50. PERTUZUMAB [Suspect]
     Active Substance: PERTUZUMAB
     Dosage: 420 MG, Q3W TARGETED THERAPY
     Route: 041
     Dates: start: 20150622, end: 20151102
  51. TRASTUZUMAB [Suspect]
     Active Substance: TRASTUZUMAB
     Indication: HER2 positive breast cancer
     Dosage: 300 MG
     Route: 042
     Dates: start: 20150629, end: 20151102
  52. TRASTUZUMAB [Suspect]
     Active Substance: TRASTUZUMAB
     Indication: Breast cancer metastatic
     Dosage: LOADING DOSE
     Route: 042
     Dates: start: 20150601, end: 20150601
  53. TRASTUZUMAB [Suspect]
     Active Substance: TRASTUZUMAB
     Dosage: DOSE REDUCED.
     Route: 042
  54. TRASTUZUMAB [Suspect]
     Active Substance: TRASTUZUMAB
     Route: 042
     Dates: start: 20160215, end: 20160215
  55. TRASTUZUMAB [Suspect]
     Active Substance: TRASTUZUMAB
     Route: 042
  56. TRASTUZUMAB [Suspect]
     Active Substance: TRASTUZUMAB
     Dosage: DOSE REDUCED
     Route: 042
  57. TRASTUZUMAB [Suspect]
     Active Substance: TRASTUZUMAB
     Dosage: 172 MG, Q3W
     Route: 042
     Dates: start: 20151201, end: 20151221
  58. TRASTUZUMAB [Suspect]
     Active Substance: TRASTUZUMAB
     Dosage: LOADING DOSE FORM: INFUSION, SOLUTION
     Route: 041
     Dates: start: 20151201, end: 20151221
  59. TRASTUZUMAB [Suspect]
     Active Substance: TRASTUZUMAB
     Route: 042
     Dates: start: 20151201, end: 20151221
  60. TRASTUZUMAB [Suspect]
     Active Substance: TRASTUZUMAB
     Dates: start: 20150601, end: 20150601
  61. TRASTUZUMAB [Suspect]
     Active Substance: TRASTUZUMAB
     Route: 042
     Dates: start: 20151201, end: 20160215
  62. TRASTUZUMAB [Suspect]
     Active Substance: TRASTUZUMAB
     Dosage: LOADING DOSE
     Route: 042
     Dates: start: 20150601, end: 20150601
  63. NERATINIB [Suspect]
     Active Substance: NERATINIB
     Indication: Product used for unknown indication
     Route: 048
     Dates: start: 20170901, end: 20180314
  64. NERATINIB [Suspect]
     Active Substance: NERATINIB
     Indication: HER2 positive breast cancer
     Route: 048
     Dates: start: 20180223, end: 20180420
  65. NERATINIB [Suspect]
     Active Substance: NERATINIB
     Indication: Breast cancer metastatic
     Dosage: 40 MG
     Route: 048
     Dates: start: 20170901, end: 20180314
  66. NERATINIB [Suspect]
     Active Substance: NERATINIB
     Route: 048
  67. NERATINIB [Suspect]
     Active Substance: NERATINIB
     Route: 048
     Dates: start: 20170901
  68. NERATINIB [Suspect]
     Active Substance: NERATINIB
     Route: 065
  69. NERATINIB [Suspect]
     Active Substance: NERATINIB
     Route: 048
  70. NERATINIB [Suspect]
     Active Substance: NERATINIB
     Route: 048
     Dates: start: 20170901, end: 20180304
  71. CIPROFLOXACIN [Concomitant]
     Active Substance: CIPROFLOXACIN
     Indication: Product used for unknown indication
     Route: 048
     Dates: start: 20151218, end: 20151225
  72. CIPROFLOXACIN [Concomitant]
     Active Substance: CIPROFLOXACIN
     Route: 048
     Dates: start: 20151218, end: 20151225
  73. AMLODIPINE [Concomitant]
     Active Substance: AMLODIPINE BESYLATE
     Indication: Product used for unknown indication
     Route: 048
  74. POTASSIUM BICARBONATE [Concomitant]
     Active Substance: POTASSIUM BICARBONATE
     Indication: Nutritional supplementation
     Dosage: 2 TABLETS EVERY DAY
     Route: 048
     Dates: start: 20150828, end: 20150830
  75. MUPIROCIN [Concomitant]
     Active Substance: MUPIROCIN
     Indication: Prophylaxis
     Route: 061
     Dates: start: 20160620, end: 20160624
  76. MUPIROCIN [Concomitant]
     Active Substance: MUPIROCIN
     Route: 061
     Dates: start: 20160620, end: 20160624
  77. MEROPENEM [Concomitant]
     Active Substance: MEROPENEM
     Indication: Lower respiratory tract infection
     Route: 042
     Dates: start: 20170215, end: 20170221
  78. SANDO-K [Concomitant]
     Indication: Nutritional supplementation
     Dosage: 2 TABLETS EVERY DAY
     Route: 048
     Dates: start: 20150828, end: 20150830
  79. DOMPERIDONE [Concomitant]
     Active Substance: DOMPERIDONE
     Indication: Product used for unknown indication
     Dosage: 10 MILLIGRAM 0.33 DAYS
     Route: 048
     Dates: start: 20160406, end: 20160421
  80. DOMPERIDONE [Concomitant]
     Active Substance: DOMPERIDONE
     Route: 048
     Dates: start: 20160406, end: 20160421
  81. DOMPERIDONE [Concomitant]
     Active Substance: DOMPERIDONE
     Route: 048
     Dates: start: 20160406, end: 20160421
  82. FILGRASTIM [Concomitant]
     Active Substance: FILGRASTIM
     Indication: Product used for unknown indication
     Dosage: EVERY DAY FOR 3 DAYS STARTING ON DAYS 3 AND 11
     Route: 058
     Dates: start: 20160421, end: 20160712
  83. FILGRASTIM [Concomitant]
     Active Substance: FILGRASTIM
     Route: 058
     Dates: start: 20150725, end: 20150730
  84. GENTAMICIN [Concomitant]
     Active Substance: GENTAMICIN
     Indication: Lower respiratory tract infection
     Route: 042
     Dates: start: 20170213, end: 201702
  85. LOPERAMIDE [Concomitant]
     Active Substance: LOPERAMIDE
     Indication: Diarrhoea
     Route: 048
     Dates: start: 20170901, end: 20171124
  86. LOPERAMIDE [Concomitant]
     Active Substance: LOPERAMIDE
     Dosage: 245 UNK
     Dates: start: 20170901, end: 20171124
  87. FOLIC ACID [Concomitant]
     Active Substance: FOLIC ACID
     Indication: Blood folate decreased
     Route: 048
     Dates: start: 20150828, end: 201708
  88. FOLIC ACID [Concomitant]
     Active Substance: FOLIC ACID
     Route: 048
     Dates: start: 20150828
  89. AMOXICILLIN\CLAVULANATE POTASSIUM [Concomitant]
     Active Substance: AMOXICILLIN\CLAVULANATE POTASSIUM
     Indication: Lower respiratory tract infection
     Dosage: 625 MILLIGRAM 0.33 DAYS
     Route: 048
     Dates: start: 20170222, end: 20170228
  90. AMOXICILLIN\CLAVULANATE POTASSIUM [Concomitant]
     Active Substance: AMOXICILLIN\CLAVULANATE POTASSIUM
     Route: 048
     Dates: start: 20170222, end: 20170228
  91. AMOXICILLIN\CLAVULANATE POTASSIUM [Concomitant]
     Active Substance: AMOXICILLIN\CLAVULANATE POTASSIUM
     Route: 048
     Dates: start: 20170222, end: 20170228
  92. PIPERACILLIN SODIUM\TAZOBACTAM SODIUM [Concomitant]
     Active Substance: PIPERACILLIN SODIUM\TAZOBACTAM SODIUM
     Indication: Lower respiratory tract infection
     Route: 042
     Dates: start: 20170213, end: 20170215
  93. RED BLOOD CELLS CONCENTRATED [Concomitant]
     Indication: Product used for unknown indication
     Dosage: 2 U, QD
     Route: 042
     Dates: start: 20160702, end: 20160702
  94. RED BLOOD CELLS CONCENTRATED [Concomitant]
     Route: 042
     Dates: start: 20180526, end: 20180526
  95. RED BLOOD CELLS CONCENTRATED [Concomitant]
     Route: 042
     Dates: start: 20180626, end: 20180626
  96. RED BLOOD CELLS CONCENTRATED [Concomitant]
     Route: 042
     Dates: start: 20180626, end: 20180626
  97. AMOXICILLIN [Concomitant]
     Active Substance: AMOXICILLIN
     Indication: Lower respiratory tract infection
     Route: 048
     Dates: start: 20170222, end: 20170228
  98. AMOXICILLIN [Concomitant]
     Active Substance: AMOXICILLIN
  99. FILGRASTIM [Concomitant]
     Active Substance: FILGRASTIM
     Indication: Product used for unknown indication
     Dosage: EVERY DAY FOR 3 DAYS STARTING ON DAYS 3 AND 11
     Route: 058
     Dates: start: 20160421, end: 20160721
  100. FILGRASTIM [Concomitant]
     Active Substance: FILGRASTIM
     Dosage: 300 MICROGRAM (QD FOR 3 DAYS STARTING ON DAY 3 AND 11) RECEIVED 300 MCG FROM 25-JUL-2015
     Route: 058
     Dates: start: 20150725, end: 20150730
  101. CLAVULANATE POTASSIUM [Concomitant]
     Active Substance: CLAVULANATE POTASSIUM
     Indication: Product used for unknown indication
     Route: 048
     Dates: start: 20170222, end: 20170228

REACTIONS (33)
  - Disease progression [Fatal]
  - Neuropathy peripheral [Fatal]
  - Alopecia [Fatal]
  - Product use issue [Fatal]
  - Intentional product misuse [Fatal]
  - Condition aggravated [Not Recovered/Not Resolved]
  - Thrombocytopenia [Not Recovered/Not Resolved]
  - Neutropenia [Not Recovered/Not Resolved]
  - Pancytopenia [Not Recovered/Not Resolved]
  - Diarrhoea [Recovered/Resolved]
  - Throat irritation [Not Recovered/Not Resolved]
  - Odynophagia [Not Recovered/Not Resolved]
  - Folate deficiency [Recovered/Resolved]
  - Colitis [Not Recovered/Not Resolved]
  - Cough [Recovered/Resolved]
  - Diarrhoea [Recovered/Resolved]
  - Fatigue [Recovered/Resolved]
  - Hypoaesthesia [Unknown]
  - Dysphonia [Recovering/Resolving]
  - Decreased appetite [Recovered/Resolved]
  - Mucosal inflammation [Recovered/Resolved]
  - Hyperchlorhydria [Recovered/Resolved]
  - Tremor [Recovered/Resolved]
  - Rash pruritic [Recovered/Resolved]
  - Palpitations [Unknown]
  - Weight decreased [Not Recovered/Not Resolved]
  - Dyspepsia [Recovered/Resolved]
  - Lethargy [Recovered/Resolved]
  - Pyrexia [Recovered/Resolved]
  - Nausea [Recovered/Resolved]
  - Fatigue [Recovered/Resolved]
  - Fatigue [Recovered/Resolved]
  - Product use issue [Unknown]

NARRATIVE: CASE EVENT DATE: 20150601
